FAERS Safety Report 23338055 (Version 8)
Quarter: 2024Q2

REPORT INFORMATION
  Report Type: Other
  Country: CN (occurrence: None)
  Receive Date: 20231226
  Receipt Date: 20240423
  Transmission Date: 20240716
  Serious: Yes (Hospitalization)
  Sender: FDA-Public Use
  Company Number: CN-ROCHE-3480299

PATIENT
  Age: 81 Year
  Sex: Male
  Weight: 60 kg

DRUGS (12)
  1. ALECTINIB [Suspect]
     Active Substance: ALECTINIB
     Indication: Non-small cell lung cancer metastatic
     Dosage: ON 05/NOV/2023, HE RECEIVED MOST RECENT DOSE (600 MG)
     Route: 048
     Dates: start: 20210907
  2. ALECTINIB [Suspect]
     Active Substance: ALECTINIB
     Route: 048
     Dates: start: 202105
  3. SPIRONOLACTONE [Concomitant]
     Active Substance: SPIRONOLACTONE
     Indication: Hypertension
     Route: 048
     Dates: start: 20231115
  4. FELODIPINE [Concomitant]
     Active Substance: FELODIPINE
     Indication: Hypertension
     Route: 048
     Dates: start: 20231115
  5. RABEPRAZOLE SODIUM [Concomitant]
     Active Substance: RABEPRAZOLE SODIUM
     Route: 048
     Dates: start: 20231115
  6. POTASSIUM CHLORIDE EXTENDED RELEASE [Concomitant]
     Active Substance: POTASSIUM CHLORIDE
     Indication: Hypokalaemia
     Route: 048
     Dates: start: 20231115
  7. FUROSEMIDE [Concomitant]
     Active Substance: FUROSEMIDE
     Indication: Hypokalaemia
     Route: 048
     Dates: start: 20231115
  8. AMIODARONE [Concomitant]
     Active Substance: AMIODARONE
     Indication: Arrhythmia
     Route: 048
     Dates: start: 20231115
  9. ATORVASTATIN CALCIUM [Concomitant]
     Active Substance: ATORVASTATIN CALCIUM
     Indication: Coronary artery disease
  10. RIVAROXABAN [Concomitant]
     Active Substance: RIVAROXABAN
     Route: 048
     Dates: start: 20231115
  11. ZOLEDRONIC ACID [Concomitant]
     Active Substance: ZOLEDRONIC ACID
     Route: 042
     Dates: start: 20240125, end: 20240125
  12. ZOLEDRONIC ACID [Concomitant]
     Active Substance: ZOLEDRONIC ACID
     Route: 042
     Dates: start: 20240307, end: 20240307

REACTIONS (7)
  - Atrial fibrillation [Recovered/Resolved]
  - Blood creatinine increased [Not Recovered/Not Resolved]
  - Blood bilirubin increased [Recovered/Resolved]
  - Anaemia [Not Recovered/Not Resolved]
  - Hypoalbuminaemia [Recovered/Resolved]
  - Hypokalaemia [Recovered/Resolved]
  - Aspartate aminotransferase increased [Recovered/Resolved]

NARRATIVE: CASE EVENT DATE: 20231106
